APPROVED DRUG PRODUCT: PAMIDRONATE DISODIUM
Active Ingredient: PAMIDRONATE DISODIUM
Strength: 90MG/10ML (9MG/ML)
Dosage Form/Route: INJECTABLE;INJECTION
Application: A078520 | Product #002 | TE Code: AP2
Applicant: MYLAN LABORATORIES LTD
Approved: Oct 31, 2008 | RLD: No | RS: No | Type: RX